FAERS Safety Report 9332015 (Version 1)
Quarter: 2013Q2

REPORT INFORMATION
  Report Type: Spontaneous
  Country: US (occurrence: US)
  Receive Date: 20130605
  Receipt Date: 20130605
  Transmission Date: 20140414
  Serious: Yes (Other)
  Sender: FDA-Public Use
  Company Number: US-US-EMD SERONO, INC.-7145807

PATIENT
  Age: 30 Year
  Sex: Female
  Weight: 104 kg

DRUGS (4)
  1. REBIF [Suspect]
     Indication: MULTIPLE SCLEROSIS
     Route: 058
     Dates: start: 20110919
  2. CITALOPRAM [Concomitant]
     Indication: DEPRESSION
  3. TRAZODONE [Concomitant]
     Indication: SLEEP DISORDER
  4. ALEVE                              /00256202/ [Concomitant]
     Indication: PRODUCT USED FOR UNKNOWN INDICATION

REACTIONS (6)
  - Meniscus injury [Recovered/Resolved]
  - Ligament sprain [Recovered/Resolved]
  - Fall [Unknown]
  - Arthritis [Not Recovered/Not Resolved]
  - Multiple sclerosis relapse [Recovered/Resolved]
  - Injection site erythema [Recovering/Resolving]
